FAERS Safety Report 7334373-7 (Version None)
Quarter: 2011Q1

REPORT INFORMATION
  Report Type: 
  Country: None (occurrence: None)
  Receive Date: 20110307
  Receipt Date: 20110221
  Transmission Date: 20110831
  Serious: Yes (Hospitalization)
  Sender: FDA-Public Use
  Company Number: PHHY2011DE06132

PATIENT
  Sex: Female

DRUGS (1)
  1. AREDIA [Suspect]
     Indication: METASTASES TO BONE
     Dosage: 90 MG
     Route: 042
     Dates: start: 20110121, end: 20110121

REACTIONS (3)
  - COMPARTMENT SYNDROME [None]
  - INJECTION SITE NECROSIS [None]
  - INCORRECT ROUTE OF DRUG ADMINISTRATION [None]
